FAERS Safety Report 19951607 (Version 1)
Quarter: 2021Q4

REPORT INFORMATION
  Report Type: Spontaneous
  Country: BR (occurrence: BR)
  Receive Date: 20211013
  Receipt Date: 20211013
  Transmission Date: 20220304
  Serious: Yes (Other)
  Sender: FDA-Public Use
  Company Number: BR-MYLANLABS-2021M1071684

PATIENT
  Age: 41 Year
  Sex: Female

DRUGS (8)
  1. CISPLATIN [Suspect]
     Active Substance: CISPLATIN
     Indication: Ovarian cancer
     Dosage: A CHEMOTHERAPY CYCLE OF CISPLATIN + GEMCITABINE + BEVACIZUMAB
     Dates: start: 202103
  2. GEMCITABINE [Suspect]
     Active Substance: GEMCITABINE
     Indication: Ovarian cancer
     Dosage: A CHEMOTHERAPY CYCLE OF CISPLATIN + GEMCITABINE + BEVACIZUMAB
     Dates: start: 202103
  3. BEVACIZUMAB [Suspect]
     Active Substance: BEVACIZUMAB
     Indication: Ovarian cancer
     Dosage: A CHEMOTHERAPY CYCLE OF CISPLATIN + GEMCITABINE + BEVACIZUMAB
     Dates: start: 202103
  4. CARBOPLATIN [Concomitant]
     Active Substance: CARBOPLATIN
     Indication: Ovarian cancer
     Dosage: THREE CYCLES OF NEOADJUVANT CHEMOTHERAPY (PACLITAXEL + CARBOPLATIN)
  5. CARBOPLATIN [Concomitant]
     Active Substance: CARBOPLATIN
     Dosage: 3 MORE CHEMOTHERAPY CYCLES (PACLITAXEL + CARBOPLATIN)
     Dates: end: 20201204
  6. PACLITAXEL [Concomitant]
     Active Substance: PACLITAXEL
     Indication: Ovarian cancer
     Dosage: THREE CYCLES OF NEOADJUVANT CHEMOTHERAPY (PACLITAXEL + CARBOPLATIN)
  7. PACLITAXEL [Concomitant]
     Active Substance: PACLITAXEL
     Dosage: 3 MORE CHEMOTHERAPY CYCLES (PACLITAXEL + CARBOPLATIN)
     Dates: end: 20201204
  8. OLAPARIB [Concomitant]
     Active Substance: OLAPARIB
     Indication: Ovarian cancer
     Dosage: UNK

REACTIONS (1)
  - Metastases to lung [Unknown]

NARRATIVE: CASE EVENT DATE: 20210101
